FAERS Safety Report 10232827 (Version 1)
Quarter: 2014Q2

REPORT INFORMATION
  Report Type: Spontaneous
  Country: US (occurrence: None)
  Receive Date: 20140506
  Receipt Date: 20140506
  Transmission Date: 20141212
  Serious: Yes (Life-Threatening, Other)
  Sender: FDA-Public Use
  Company Number: 1253031

PATIENT
  Age: 55 Year
  Sex: Male

DRUGS (2)
  1. AVASTIN (BEVACIZUMAB) [Suspect]
     Indication: COLORECTAL CANCER METASTATIC
     Route: 042
  2. AVASTIN (BEVACIZUMAB) [Suspect]
     Indication: COLON CANCER
     Route: 042

REACTIONS (4)
  - Gastrointestinal perforation [None]
  - Osteonecrosis [None]
  - Tooth disorder [None]
  - Gastrointestinal infection [None]
